FAERS Safety Report 19117012 (Version 5)
Quarter: 2021Q3

REPORT INFORMATION
  Report Type: Report from Study
  Country: US (occurrence: US)
  Receive Date: 20210410
  Receipt Date: 20210928
  Transmission Date: 20211014
  Serious: No
  Sender: FDA-Public Use
  Company Number: NVSC2021US079106

PATIENT
  Age: 59 Year
  Sex: Female

DRUGS (2)
  1. ENTRESTO [Suspect]
     Active Substance: SACUBITRIL\VALSARTAN
     Indication: PRODUCT USED FOR UNKNOWN INDICATION
     Dosage: 100 MG, BID (49/51 MG)
     Route: 048
     Dates: start: 202012
  2. ENTRESTO [Suspect]
     Active Substance: SACUBITRIL\VALSARTAN
     Dosage: 1 DF, BID (97/103 MG)
     Route: 048

REACTIONS (7)
  - Chest pain [Unknown]
  - Dizziness [Unknown]
  - Vomiting [Unknown]
  - Cough [Unknown]
  - Blood pressure decreased [Unknown]
  - Illness [Unknown]
  - Weight increased [Unknown]

NARRATIVE: CASE EVENT DATE: 202103
